FAERS Safety Report 6507502-2 (Version None)
Quarter: 2009Q4

REPORT INFORMATION
  Report Type: 
  Country: None (occurrence: None)
  Receive Date: 20091221
  Receipt Date: 20091120
  Transmission Date: 20100525
  Serious: No
  Sender: FDA-Public Use
  Company Number: US-BAYER-200941268NA

PATIENT
  Age: 23 Year
  Sex: Female

DRUGS (4)
  1. MIRENA [Suspect]
     Indication: CONTRACEPTION
     Dosage: CONTINUOUS
     Dates: start: 20091113
  2. ANTIBIOTICS NOS [Concomitant]
     Indication: CHLAMYDIAL INFECTION
  3. TYLENOL (CAPLET) [Concomitant]
     Indication: ABDOMINAL PAIN LOWER
  4. VICODIN [Concomitant]
     Indication: ABDOMINAL PAIN LOWER

REACTIONS (3)
  - CHLAMYDIAL INFECTION [None]
  - PROCEDURAL PAIN [None]
  - VAGINAL HAEMORRHAGE [None]
